FAERS Safety Report 22241226 (Version 1)
Quarter: 2023Q2

REPORT INFORMATION
  Report Type: Spontaneous
  Country: GB (occurrence: GB)
  Receive Date: 20230421
  Receipt Date: 20230421
  Transmission Date: 20230722
  Serious: Yes (Other)
  Sender: FDA-Public Use
  Company Number: GB-MHRA-MED-202304040752083020-PHGKW

PATIENT
  Sex: Female
  Weight: 50 kg

DRUGS (4)
  1. CLINDAMYCIN [Suspect]
     Active Substance: CLINDAMYCIN
     Indication: Retained placenta operation
     Dosage: 600 MG, QID (AT EVEN INTERVALS THROUGHOUT THE DAY)
     Route: 065
     Dates: start: 20230303, end: 20230308
  2. AMOXICILLIN\CLAVULANATE POTASSIUM [Concomitant]
     Active Substance: AMOXICILLIN\CLAVULANATE POTASSIUM
     Indication: Retained placenta operation
     Dosage: UNK
     Route: 065
     Dates: start: 20230303, end: 20230303
  3. IBUPROFEN [Concomitant]
     Active Substance: IBUPROFEN
     Indication: Labour pain
     Dosage: UNK
     Route: 065
     Dates: start: 20230303, end: 20230309
  4. ACETAMINOPHEN [Concomitant]
     Active Substance: ACETAMINOPHEN
     Indication: Labour pain
     Dosage: UNK
     Route: 065
     Dates: start: 20230303, end: 20230309

REACTIONS (2)
  - Gastrooesophageal reflux disease [Recovered/Resolved]
  - Chest pain [Unknown]

NARRATIVE: CASE EVENT DATE: 20230304
